FAERS Safety Report 9217916 (Version 1)
Quarter: 2013Q2

REPORT INFORMATION
  Report Type: Spontaneous
  Country: GB (occurrence: GB)
  Receive Date: 20130408
  Receipt Date: 20130408
  Transmission Date: 20140414
  Serious: Yes (Other)
  Sender: FDA-Public Use
  Company Number: GB-GLAXOSMITHKLINE-B0879803A

PATIENT
  Age: 62 Year
  Sex: Male
  Weight: 120.5 kg

DRUGS (5)
  1. ORLISTAT [Suspect]
     Indication: WEIGHT DECREASED
     Dosage: 360MG PER DAY
     Route: 048
     Dates: start: 20130212, end: 20130228
  2. BENDROFLUMETHIAZIDE [Concomitant]
     Indication: HYPERTENSION
     Route: 048
     Dates: start: 2004
  3. ATORVASTATIN [Concomitant]
     Indication: DIABETES MELLITUS
     Route: 048
     Dates: start: 20130115
  4. METFORMIN [Concomitant]
     Indication: DIABETES MELLITUS
     Dosage: 2000MG PER DAY
     Route: 048
     Dates: start: 2010
  5. PRAVASTATIN [Concomitant]
     Indication: DIABETES MELLITUS
     Route: 048
     Dates: start: 2011

REACTIONS (1)
  - Rectal haemorrhage [Recovered/Resolved]
